FAERS Safety Report 26210116 (Version 1)
Quarter: 2025Q4

REPORT INFORMATION
  Report Type: Spontaneous
  Country: US (occurrence: US)
  Receive Date: 20251229
  Receipt Date: 20251229
  Transmission Date: 20260118
  Serious: No
  Sender: SANDOZ
  Company Number: US-INCYTE CORPORATION-2025IN014037

PATIENT
  Sex: Female

DRUGS (12)
  1. TACROLIMUS [Suspect]
     Active Substance: TACROLIMUS
     Indication: Still^s disease
     Dosage: UNK
  2. TACROLIMUS [Suspect]
     Active Substance: TACROLIMUS
     Indication: Interstitial lung disease
  3. JAKAFI [Suspect]
     Active Substance: RUXOLITINIB
     Indication: Interstitial lung disease
     Dosage: UNK
  4. JAKAFI [Suspect]
     Active Substance: RUXOLITINIB
     Indication: Still^s disease
  5. CANAKINUMAB [Suspect]
     Active Substance: CANAKINUMAB
     Indication: Interstitial lung disease
     Dosage: UNK
  6. CANAKINUMAB [Suspect]
     Active Substance: CANAKINUMAB
     Indication: Still^s disease
  7. ANAKINRA [Suspect]
     Active Substance: ANAKINRA
     Indication: Interstitial lung disease
     Dosage: UNK
  8. ANAKINRA [Suspect]
     Active Substance: ANAKINRA
     Indication: Still^s disease
  9. TOCILIZUMAB [Suspect]
     Active Substance: TOCILIZUMAB
     Indication: Still^s disease
     Dosage: UNK
  10. TOCILIZUMAB [Suspect]
     Active Substance: TOCILIZUMAB
     Indication: Interstitial lung disease
  11. EMAPALUMAB [Suspect]
     Active Substance: EMAPALUMAB
     Indication: Still^s disease
     Dosage: UNK
  12. EMAPALUMAB [Suspect]
     Active Substance: EMAPALUMAB
     Indication: Interstitial lung disease

REACTIONS (3)
  - Interleukin level increased [Unknown]
  - Drug ineffective for unapproved indication [Unknown]
  - Off label use [Unknown]
